FAERS Safety Report 6052112-7 (Version None)
Quarter: 2009Q1

REPORT INFORMATION
  Report Type: 
  Country: None (occurrence: None)
  Receive Date: 20090126
  Receipt Date: 20090119
  Transmission Date: 20090719
  Serious: Yes (Death)
  Sender: FDA-Public Use
  Company Number: US-B.I. PHARMACEUTICALS,INC./RIDGEFIELD-2009-DE-00569GD

PATIENT
  Age: 57 Year
  Sex: Male

DRUGS (8)
  1. CLONIDINE HCL [Suspect]
  2. VERAPAMIL [Suspect]
     Route: 048
  3. PROPRANOLOL [Suspect]
  4. LITHIUM [Suspect]
  5. QUETIAPINE FUMARATE [Suspect]
  6. GLIPIZIDE [Suspect]
  7. MODAFINIL [Suspect]
  8. PAROXETINE HCL [Suspect]

REACTIONS (1)
  - DEATH [None]
